FAERS Safety Report 8418830-8 (Version None)
Quarter: 2012Q2

REPORT INFORMATION
  Report Type: 
  Country: None (occurrence: None)
  Receive Date: 20120607
  Receipt Date: 20120601
  Transmission Date: 20120825
  Serious: Yes (Hospitalization)
  Sender: FDA-Public Use
  Company Number: US-ROCHE-1074369

PATIENT
  Sex: Male

DRUGS (1)
  1. CELLCEPT [Suspect]
     Indication: TRANSPLANT
     Route: 048

REACTIONS (3)
  - GASTROINTESTINAL TUBE INSERTION [None]
  - DIARRHOEA [None]
  - CLOSTRIDIAL INFECTION [None]
